FAERS Safety Report 4350290-9 (Version None)
Quarter: 2004Q2

REPORT INFORMATION
  Report Type: 
  Country: None (occurrence: None)
  Receive Date: 20040427
  Receipt Date: 20040419
  Transmission Date: 20050107
  Serious: Yes (Death)
  Sender: FDA-Public Use
  Company Number: USA-2004-0014653

PATIENT
  Age: 20 Year
  Sex: Male
  Weight: 72.6 kg

DRUGS (2)
  1. MORPHINE SULFATE [Suspect]
  2. COCAINE (COCAINE) [Suspect]

REACTIONS (16)
  - CONTUSION [None]
  - DRUG SCREEN POSITIVE [None]
  - HAEMOTHORAX [None]
  - HEAD INJURY [None]
  - HEART INJURY [None]
  - LACERATION [None]
  - LUNG INJURY [None]
  - MULTIPLE FRACTURES [None]
  - POLYTRAUMATISM [None]
  - RIB FRACTURE [None]
  - ROAD TRAFFIC ACCIDENT [None]
  - SKULL FRACTURE [None]
  - SPLENIC INJURY [None]
  - STERNAL FRACTURE [None]
  - TOXICOLOGIC TEST ABNORMAL [None]
  - UPPER LIMB FRACTURE [None]
